FAERS Safety Report 11492362 (Version 1)
Quarter: 2015Q3

REPORT INFORMATION
  Report Type: Spontaneous
  Country: US (occurrence: None)
  Receive Date: 20150910
  Receipt Date: 20150910
  Transmission Date: 20151125
  Serious: Yes (Death)
  Sender: FDA-Public Use
  Company Number: None

PATIENT
  Age: 75 Year
  Sex: Male
  Weight: 99.3 kg

DRUGS (9)
  1. LASIX [Concomitant]
     Active Substance: FUROSEMIDE
  2. PREDNISONE. [Concomitant]
     Active Substance: PREDNISONE
  3. BELATACEPT [Suspect]
     Active Substance: BELATACEPT
     Indication: IMMUNOSUPPRESSION
     Dosage: 500 MG IN 100 CC NS
     Route: 042
  4. LEVOTHYROXINE. [Concomitant]
     Active Substance: LEVOTHYROXINE
  5. ZAROXOLYN [Concomitant]
     Active Substance: METOLAZONE
  6. ELIQUIS [Concomitant]
     Active Substance: APIXABAN
  7. MYFORTIC [Concomitant]
     Active Substance: MYCOPHENOLATE SODIUM
  8. PRILOSEC [Concomitant]
     Active Substance: OMEPRAZOLE MAGNESIUM
  9. FLOMAX [Concomitant]
     Active Substance: TAMSULOSIN HYDROCHLORIDE

REACTIONS (9)
  - Back pain [None]
  - Atrial fibrillation [None]
  - Abdominal pain [None]
  - Pulseless electrical activity [None]
  - Respiratory rate increased [None]
  - Lipase increased [None]
  - Viral infection [None]
  - Hypotension [None]
  - Lethargy [None]

NARRATIVE: CASE EVENT DATE: 20150420
